FAERS Safety Report 9833075 (Version 1)
Quarter: 2014Q1

REPORT INFORMATION
  Report Type: Spontaneous
  Country: ES (occurrence: ES)
  Receive Date: 20140121
  Receipt Date: 20140121
  Transmission Date: 20141002
  Serious: Yes (Other)
  Sender: FDA-Public Use
  Company Number: PHHY2014ES004118

PATIENT
  Age: 66 Year
  Sex: Female

DRUGS (2)
  1. ENOXAPARIN [Suspect]
     Indication: PULMONARY EMBOLISM
     Route: 058
  2. ACENOCOUMAROL [Concomitant]
     Indication: PULMONARY EMBOLISM

REACTIONS (6)
  - Septal panniculitis [Recovering/Resolving]
  - Eosinophilia [Recovering/Resolving]
  - Skin mass [Recovering/Resolving]
  - Skin lesion [Unknown]
  - Prurigo [Recovering/Resolving]
  - Skin reaction [Recovering/Resolving]
